FAERS Safety Report 21069883 (Version 1)
Quarter: 2022Q3

REPORT INFORMATION
  Report Type: Spontaneous
  Country: ES (occurrence: ES)
  Receive Date: 20220712
  Receipt Date: 20220712
  Transmission Date: 20221027
  Serious: Yes (Other)
  Sender: FDA-Public Use
  Company Number: None

PATIENT
  Age: 85 Year
  Sex: Female

DRUGS (5)
  1. VALIUM [Suspect]
     Active Substance: DIAZEPAM
     Indication: Product used for unknown indication
     Dosage: 1 COMP AL DIA
     Route: 050
     Dates: start: 20210303, end: 20210311
  2. RIVOTRIL [Suspect]
     Active Substance: CLONAZEPAM
     Indication: Agitation
     Dosage: 1 COMP AL DIA
     Route: 050
     Dates: start: 20201125, end: 20210311
  3. HALOPERIDOL [Suspect]
     Active Substance: HALOPERIDOL
     Indication: Agitation
     Dosage: RESCATE 5 GOTAS
     Route: 050
     Dates: start: 20210202, end: 20210311
  4. NEBIVOLOL CINFA 5 mg COMPRIMIDOS EFG, 28 comprimidos [Concomitant]
     Indication: Hypertension
     Dosage: 1 COMP. DIA
     Route: 050
     Dates: start: 20170424
  5. MEMANTINA ARISTO 10 MG/ML SOLUCION ORAL EFG , 100 ml [Concomitant]
     Indication: Dementia Alzheimer^s type
     Route: 050
     Dates: start: 20180115

REACTIONS (3)
  - Toxicity to various agents [Recovered/Resolved]
  - Depressed level of consciousness [Recovered/Resolved]
  - Confusional state [Recovered/Resolved]

NARRATIVE: CASE EVENT DATE: 20210311
